FAERS Safety Report 11567431 (Version 1)
Quarter: 2015Q3

REPORT INFORMATION
  Report Type: Spontaneous
  Country: US (occurrence: US)
  Receive Date: 20150916
  Receipt Date: 20150916
  Transmission Date: 20151125
  Serious: No
  Sender: FDA-Public Use
  Company Number: US-ELI_LILLY_AND_COMPANY-US200907005152

PATIENT
  Sex: Female

DRUGS (3)
  1. FORTEO [Suspect]
     Active Substance: TERIPARATIDE
     Dosage: UNK, 2/W
  2. FORTEO [Suspect]
     Active Substance: TERIPARATIDE
     Dosage: UNK, DAILY (1/D)
     Dates: start: 2007
  3. FORTEO [Suspect]
     Active Substance: TERIPARATIDE
     Dosage: UNK, 3/W

REACTIONS (3)
  - Blood calcium increased [Unknown]
  - Cystitis interstitial [Unknown]
  - Rosacea [Unknown]
